FAERS Safety Report 8910605 (Version 2)
Quarter: 2012Q4

REPORT INFORMATION
  Report Type: Report from Study
  Country: DE (occurrence: DE)
  Receive Date: 20121114
  Receipt Date: 20121115
  Transmission Date: 20130627
  Serious: Yes (Life-Threatening, Hospitalization)
  Sender: FDA-Public Use
  Company Number: DE-GLAXOSMITHKLINE-B0572393B

PATIENT
  Sex: Female
  Weight: 49.4 kg

DRUGS (3)
  1. LAPATINIB [Suspect]
     Indication: BREAST CANCER
     Dosage: 1250MG Per day
     Route: 048
     Dates: start: 20090414, end: 20090630
  2. PACLITAXEL [Suspect]
     Indication: BREAST CANCER
     Dosage: 260MG Every 3 weeks
     Route: 042
     Dates: start: 20090414
  3. MYOCET [Suspect]
     Indication: BREAST CANCER
     Dosage: 90MG Every 3 weeks
     Route: 042
     Dates: start: 20090414

REACTIONS (5)
  - Neutropenia [Recovering/Resolving]
  - Thrombocytopenia [Recovering/Resolving]
  - Neutropenia [Recovered/Resolved]
  - Thrombocytopenia [Recovered/Resolved]
  - Leukopenia [Recovered/Resolved]
